FAERS Safety Report 4752571-3 (Version None)
Quarter: 2005Q3

REPORT INFORMATION
  Report Type: 
  Country: None (occurrence: None)
  Receive Date: 20050824
  Receipt Date: 20050808
  Transmission Date: 20060218
  Serious: Yes (Other)
  Sender: FDA-Public Use
  Company Number: USA0508104901

PATIENT
  Age: 28 Year
  Sex: Female

DRUGS (2)
  1. HUMALOG [Suspect]
  2. HUMULIN N [Suspect]

REACTIONS (2)
  - SCHIZOPHRENIA [None]
  - VISUAL DISTURBANCE [None]
